FAERS Safety Report 4419601-X (Version None)
Quarter: 2004Q3

REPORT INFORMATION
  Report Type: 
  Country: None (occurrence: None)
  Receive Date: 20040804
  Receipt Date: 20040720
  Transmission Date: 20050211
  Serious: Yes (Hospitalization)
  Sender: FDA-Public Use
  Company Number: CA-2004-029062

PATIENT
  Age: 42 Year
  Sex: Male

DRUGS (1)
  1. BETASERON [Suspect]
     Indication: MULTIPLE SCLEROSIS RELAPSE
     Dosage: 8 MIU, EVERY 2D NEW AUTOINJECTOR, SUBCUTANEOUS
     Route: 058
     Dates: start: 20031015

REACTIONS (6)
  - BURNING SENSATION [None]
  - HYPOAESTHESIA [None]
  - NAUSEA [None]
  - ROAD TRAFFIC ACCIDENT [None]
  - VERTIGO [None]
  - VOMITING [None]
